FAERS Safety Report 8328493-8 (Version None)
Quarter: 2012Q2

REPORT INFORMATION
  Report Type: 
  Country: None (occurrence: None)
  Receive Date: 20120502
  Receipt Date: 20100717
  Transmission Date: 20120825
  Serious: No
  Sender: FDA-Public Use
  Company Number: US-TEVA-2010003824

PATIENT
  Sex: Male

DRUGS (7)
  1. TOPAMAX [Concomitant]
  2. KADIAN [Concomitant]
  3. GLYBURIDE [Concomitant]
  4. SPIRIVA [Concomitant]
  5. TRAMADOL HCL [Concomitant]
  6. INSULIN [Concomitant]
  7. NUVIGIL [Suspect]
     Indication: FATIGUE
     Route: 048
     Dates: start: 20100701

REACTIONS (1)
  - DRUG INEFFECTIVE FOR UNAPPROVED INDICATION [None]
